FAERS Safety Report 7818027-6 (Version None)
Quarter: 2011Q4

REPORT INFORMATION
  Report Type: 
  Country: None (occurrence: None)
  Receive Date: 20111017
  Receipt Date: 20111004
  Transmission Date: 20120403
  Serious: Yes (Hospitalization, Other)
  Sender: FDA-Public Use
  Company Number: US-BAYER-201031166NA

PATIENT
  Age: 34 Year
  Sex: Female
  Weight: 64.853 kg

DRUGS (9)
  1. IBUPROFEN (ADVIL) [Concomitant]
  2. ADVAIR DISKUS 100/50 [Concomitant]
  3. YAZ [Suspect]
     Indication: PRODUCT USED FOR UNKNOWN INDICATION
     Dosage: UNK
     Route: 048
     Dates: start: 20081001, end: 20091201
  4. MOTRIN [Concomitant]
  5. YAZ [Suspect]
     Indication: OVARIAN CYST
  6. CAPOTEN [Concomitant]
     Dosage: UNK
     Dates: start: 20091201, end: 20100201
  7. YAZ [Suspect]
     Indication: PREMENSTRUAL SYNDROME
     Dosage: UNK
     Dates: end: 20091201
  8. EXCEDRIN (MIGRAINE) [Concomitant]
  9. MIDRIN [Concomitant]

REACTIONS (8)
  - PAIN [None]
  - GENERAL PHYSICAL HEALTH DETERIORATION [None]
  - ACUTE CORONARY SYNDROME [None]
  - CORONARY ARTERY DISEASE [None]
  - DISABILITY [None]
  - CORONARY ARTERY DISSECTION [None]
  - EMBOLISM [None]
  - MYOCARDIAL INFARCTION [None]
